FAERS Safety Report 4320016-3 (Version None)
Quarter: 2004Q1

REPORT INFORMATION
  Report Type: 
  Country: None (occurrence: None)
  Receive Date: 20040317
  Receipt Date: 20040303
  Transmission Date: 20041129
  Serious: Yes (Death, Other)
  Sender: FDA-Public Use
  Company Number: 2004014778

PATIENT
  Age: 55 Year
  Sex: Male

DRUGS (4)
  1. VORICONAZOLE (VORICONAZOLE) [Suspect]
     Indication: LUNG NEOPLASM
  2. PREDNISONE [Concomitant]
  3. CYCLOSPORINE [Concomitant]
  4. DACLIXIMAB DACLIZUMAB) [Concomitant]

REACTIONS (2)
  - SKIN LESION [None]
  - ZYGOMYCOSIS [None]
